FAERS Safety Report 18693162 (Version 3)
Quarter: 2021Q2

REPORT INFORMATION
  Report Type: Report from Study
  Country: US (occurrence: US)
  Receive Date: 20210104
  Receipt Date: 20210416
  Transmission Date: 20210717
  Serious: Yes (Other)
  Sender: FDA-Public Use
  Company Number: US-ACADIA PHARMACEUTICALS INC.-ACA-2020-PIM-004136

PATIENT
  Sex: Male
  Weight: 59 kg

DRUGS (6)
  1. COVID?19 VACCINE NOS. [Concomitant]
     Active Substance: COVID-19 VACCINE NOS
  2. NUPLAZID [Suspect]
     Active Substance: PIMAVANSERIN TARTRATE
     Indication: DELUSION
     Dosage: 34 MILLIGRAM, QD
     Route: 048
     Dates: start: 2021
  3. NUPLAZID [Suspect]
     Active Substance: PIMAVANSERIN TARTRATE
     Indication: PARKINSON^S DISEASE PSYCHOSIS
     Dosage: 34 MILLIGRAM, QD
     Route: 048
     Dates: start: 202011, end: 2020
  4. BOTOX [Suspect]
     Active Substance: ONABOTULINUMTOXINA
  5. NUPLAZID [Suspect]
     Active Substance: PIMAVANSERIN TARTRATE
     Indication: HALLUCINATION
     Dosage: 34 MILLIGRAM, QD
     Route: 048
     Dates: start: 202012, end: 202101
  6. SEROQUEL [Suspect]
     Active Substance: QUETIAPINE FUMARATE

REACTIONS (15)
  - Aggression [Unknown]
  - Drug ineffective [Not Recovered/Not Resolved]
  - Muscle disorder [Unknown]
  - Gait inability [Unknown]
  - Freezing phenomenon [Unknown]
  - Asthenia [Not Recovered/Not Resolved]
  - Hallucination [Not Recovered/Not Resolved]
  - Confusional state [Unknown]
  - Hallucination [Unknown]
  - Saliva altered [Recovered/Resolved]
  - Amnesia [Not Recovered/Not Resolved]
  - Deafness [Not Recovered/Not Resolved]
  - Blindness [Not Recovered/Not Resolved]
  - Suicidal ideation [Unknown]
  - Saliva altered [Not Recovered/Not Resolved]

NARRATIVE: CASE EVENT DATE: 2020
